FAERS Safety Report 5342791-1 (Version None)
Quarter: 2007Q2

REPORT INFORMATION
  Report Type: 
  Country: None (occurrence: None)
  Receive Date: 20070601
  Receipt Date: 20070522
  Transmission Date: 20071010
  Serious: Yes (Other)
  Sender: FDA-Public Use
  Company Number: US-PFIZER INC-2007042163

PATIENT
  Sex: Male
  Weight: 81.6 kg

DRUGS (5)
  1. CHANTIX [Suspect]
  2. NEXIUM [Concomitant]
     Indication: GASTROOESOPHAGEAL REFLUX DISEASE
  3. PLAVIX [Concomitant]
  4. MIDODRINE [Concomitant]
  5. ACETYLSALICYLIC ACID SRT [Concomitant]

REACTIONS (2)
  - AGEUSIA [None]
  - WEIGHT DECREASED [None]
